FAERS Safety Report 11492727 (Version 1)
Quarter: 2015Q3

REPORT INFORMATION
  Report Type: Spontaneous
  Country: CA (occurrence: CA)
  Receive Date: 20150911
  Receipt Date: 20150911
  Transmission Date: 20151125
  Serious: Yes (Life-Threatening, Hospitalization)
  Sender: FDA-Public Use
  Company Number: CA-HOSPIRA-2998241

PATIENT
  Age: 81 Year
  Sex: Female
  Weight: 50 kg

DRUGS (4)
  1. MIDAZOLAM [Suspect]
     Active Substance: MIDAZOLAM\MIDAZOLAM HYDROCHLORIDE
     Indication: ENDOTRACHEAL INTUBATION
     Route: 042
  2. GLYCOPYRROLATE                     /00196201/ [Suspect]
     Active Substance: GLYCOPYRRONIUM
     Indication: ENDOTRACHEAL INTUBATION
     Route: 042
  3. LIDOCAINE. [Suspect]
     Active Substance: LIDOCAINE
     Indication: NERVE BLOCK
     Dosage: APPROX. 100 MG VIA TWO PLEDGETS INSERTED ORALLY FOR ONE TO TWO MINUTES
     Route: 061
  4. LIDOCAINE. [Suspect]
     Active Substance: LIDOCAINE
     Indication: NERVE BLOCK
     Dosage: VIA ATOMIZER

REACTIONS (5)
  - Bradycardia [Unknown]
  - Hypotension [Unknown]
  - Pulse absent [Recovered/Resolved]
  - Tachycardia [Unknown]
  - Upper airway obstruction [Recovered/Resolved]
